FAERS Safety Report 5943696-5 (Version None)
Quarter: 2008Q4

REPORT INFORMATION
  Report Type: 
  Country: None (occurrence: None)
  Receive Date: 20081106
  Receipt Date: 20081027
  Transmission Date: 20090506
  Serious: Yes (Other)
  Sender: FDA-Public Use
  Company Number: US-PFIZER INC-2008085656

PATIENT
  Sex: Female
  Weight: 87.5 kg

DRUGS (6)
  1. LIPITOR [Suspect]
     Route: 048
     Dates: start: 20061009, end: 20081011
  2. BENICAR HCT [Concomitant]
  3. VOLTAREN [Concomitant]
     Route: 061
  4. NAPRELAN [Concomitant]
  5. NEXIUM [Concomitant]
  6. PROTONIX [Concomitant]

REACTIONS (13)
  - ARTHRALGIA [None]
  - BACK PAIN [None]
  - FALL [None]
  - GAIT DISTURBANCE [None]
  - IMPAIRED WORK ABILITY [None]
  - JOINT RANGE OF MOTION DECREASED [None]
  - JOINT SWELLING [None]
  - MUSCLE SPASMS [None]
  - MUSCULOSKELETAL PAIN [None]
  - MYALGIA [None]
  - MYOSITIS [None]
  - PAIN IN EXTREMITY [None]
  - STRESS [None]
